FAERS Safety Report 6554929-9 (Version None)
Quarter: 2010Q1

REPORT INFORMATION
  Report Type: 
  Country: None (occurrence: None)
  Receive Date: 20100126
  Receipt Date: 20100112
  Transmission Date: 20100710
  Serious: Yes (Hospitalization, Disabling)
  Sender: FDA-Public Use
  Company Number: DSJ-2010-00347

PATIENT
  Age: 77 Year
  Sex: Female
  Weight: 67 kg

DRUGS (7)
  1. OLMESARTAN MEDOXOMIL [Suspect]
     Indication: HYPERTENSION
     Dosage: 20 MG (20 MG, 1 IN 1 D), PER ORAL
     Route: 048
     Dates: start: 20041101
  2. CALBLOCK (AZELNIDIPINE) (TABLET) (AZELNIDIPINE) [Suspect]
     Indication: HYPERTENSION
     Dosage: 16 MG (16 MG, 1 IN 1 D), PER ORAL
     Route: 048
     Dates: start: 20050108
  3. LIVALO [Suspect]
     Indication: HYPERCHOLESTEROLAEMIA
     Dosage: 2 MG (2 MG, 1 IN 1 D), PER ORAL
     Route: 048
     Dates: start: 20041102, end: 20081114
  4. LOXONIN (LOXOPROFEN SODIUM) (TABLET) (LOXOPROFEN SODIUM) [Concomitant]
  5. MUCOSTA (REBAMIPIDE) (TABLET) (REBAMIPIDE) [Concomitant]
  6. MILTAX (KETOPROFEN) (TABLET) (KETOPROFEN) [Concomitant]
  7. ALOSENN (ACHILLEA MILLEFOLIUM, SENNA ALEXANDRINA LEAF, SENNA ALEXANDRI [Concomitant]

REACTIONS (5)
  - BILE DUCT CANCER [None]
  - BLOOD ALKALINE PHOSPHATASE INCREASED [None]
  - BLOOD LACTATE DEHYDROGENASE INCREASED [None]
  - GAMMA-GLUTAMYLTRANSFERASE INCREASED [None]
  - LEUKOCYTE ALKALINE PHOSPHATASE INCREASED [None]
